FAERS Safety Report 6670360-X (Version None)
Quarter: 2010Q2

REPORT INFORMATION
  Report Type: 
  Country: None (occurrence: None)
  Receive Date: 20100407
  Receipt Date: 20100329
  Transmission Date: 20101027
  Serious: Yes (Other)
  Sender: FDA-Public Use
  Company Number: US-BIOGENIDEC-2009BI005928

PATIENT
  Age: 56 Year
  Sex: Female

DRUGS (6)
  1. TYSABRI [Suspect]
     Indication: MULTIPLE SCLEROSIS
     Route: 042
     Dates: start: 20080717, end: 20090101
  2. TYSABRI [Suspect]
     Route: 042
     Dates: end: 20090522
  3. TOPAMAX [Concomitant]
     Indication: DRUG USE FOR UNKNOWN INDICATION
  4. OXYCODONE [Concomitant]
     Indication: DRUG USE FOR UNKNOWN INDICATION
  5. DETROL [Concomitant]
     Indication: DRUG USE FOR UNKNOWN INDICATION
  6. VFEND [Concomitant]
     Indication: DRUG USE FOR UNKNOWN INDICATION

REACTIONS (20)
  - ABASIA [None]
  - APHAGIA [None]
  - APHASIA [None]
  - CHOKING [None]
  - CONVULSION [None]
  - CRYING [None]
  - DRY SKIN [None]
  - DYSSTASIA [None]
  - FALL [None]
  - FATIGUE [None]
  - FEELING ABNORMAL [None]
  - HYPOAESTHESIA [None]
  - INSOMNIA [None]
  - MULTIPLE SCLEROSIS [None]
  - MUSCLE SPASMS [None]
  - NERVOUSNESS [None]
  - SKIN LACERATION [None]
  - SPEECH DISORDER [None]
  - TREMOR [None]
  - VISUAL IMPAIRMENT [None]
